FAERS Safety Report 14532838 (Version 1)
Quarter: 2018Q1

REPORT INFORMATION
  Report Type: Report from Study
  Country: NL (occurrence: NL)
  Receive Date: 20180214
  Receipt Date: 20180214
  Transmission Date: 20180509
  Serious: Yes (Hospitalization)
  Sender: FDA-Public Use
  Company Number: NL-AMGEN-NLDSL2018018514

PATIENT
  Age: 73 Year
  Sex: Male

DRUGS (1)
  1. ARANESP [Suspect]
     Active Substance: DARBEPOETIN ALFA
     Indication: MYELODYSPLASTIC SYNDROME
     Dosage: 150 (500MCG/ML 0,3ML) MUG, QWK
     Route: 058

REACTIONS (4)
  - Hypotension [Unknown]
  - Laceration [Unknown]
  - Skin atrophy [Unknown]
  - Pyrexia [Unknown]

NARRATIVE: CASE EVENT DATE: 20180207
